FAERS Safety Report 8461628-5 (Version None)
Quarter: 2012Q2

REPORT INFORMATION
  Report Type: 
  Country: None (occurrence: None)
  Receive Date: 20120625
  Receipt Date: 20120614
  Transmission Date: 20120825
  Serious: Yes (Hospitalization, Other)
  Sender: FDA-Public Use
  Company Number: PHHY2012FR051775

PATIENT
  Sex: Female

DRUGS (7)
  1. CLOZAPINE [Suspect]
     Indication: SCHIZOPHRENIA, PARANOID TYPE
     Dosage: 50 MG/DAY
     Route: 048
     Dates: end: 20120418
  2. CLOZAPINE [Suspect]
     Dosage: 25 MG/DAY
     Dates: start: 20120505, end: 20120506
  3. CLOZAPINE [Suspect]
     Dosage: 75 MG/DAY
  4. LEVOTHYROXINE SODIUM [Concomitant]
     Dosage: 100 UG/DAY
  5. TERCIAN [Concomitant]
     Dosage: 37.5 MG, QD
  6. XANAX [Concomitant]
     Dosage: 0.75
  7. ABILIFY [Suspect]
     Route: 048
     Dates: start: 20120419, end: 20120504

REACTIONS (18)
  - WEIGHT DECREASED [None]
  - PCO2 ABNORMAL [None]
  - DECREASED APPETITE [None]
  - DILATATION VENTRICULAR [None]
  - DEEP VEIN THROMBOSIS [None]
  - ELECTROCARDIOGRAM T WAVE ABNORMAL [None]
  - DYSKINESIA [None]
  - SHOCK [None]
  - PO2 ABNORMAL [None]
  - OXYGEN SATURATION DECREASED [None]
  - SINUS TACHYCARDIA [None]
  - EMBOLISM VENOUS [None]
  - BLOOD LACTIC ACID INCREASED [None]
  - GENERAL PHYSICAL HEALTH DETERIORATION [None]
  - VENTRICULAR DYSKINESIA [None]
  - PULMONARY EMBOLISM [None]
  - HAEMODYNAMIC INSTABILITY [None]
  - BLOOD BICARBONATE INCREASED [None]
